FAERS Safety Report 8520186-7 (Version None)
Quarter: 2012Q3

REPORT INFORMATION
  Report Type: 
  Country: None (occurrence: None)
  Receive Date: 20120719
  Receipt Date: 20120712
  Transmission Date: 20120928
  Serious: Yes (Death)
  Sender: FDA-Public Use
  Company Number: JP-SANOFI-AVENTIS-2012SA050571

PATIENT
  Age: 63 Year
  Sex: Male
  Weight: 75 kg

DRUGS (14)
  1. PLAVIX [Suspect]
     Route: 048
     Dates: start: 20120220, end: 20120220
  2. HEPARIN [Concomitant]
     Indication: PERCUTANEOUS CORONARY INTERVENTION
     Route: 048
     Dates: start: 20120220, end: 20120220
  3. DIPHENHYDRAMINE HCL [Concomitant]
     Indication: RASH
     Route: 061
     Dates: start: 20120227, end: 20120228
  4. ISOSORBIDE DINITRATE [Concomitant]
     Route: 065
     Dates: start: 20120221, end: 20120221
  5. ISOSORBIDE DINITRATE [Concomitant]
     Route: 065
     Dates: start: 20120221, end: 20120221
  6. PLAVIX [Suspect]
     Route: 048
     Dates: start: 20120221, end: 20120228
  7. RABEPRAZOLE SODIUM [Concomitant]
     Indication: GASTRITIS PROPHYLAXIS
     Route: 048
     Dates: start: 20120221, end: 20120228
  8. ASPIRIN [Concomitant]
     Route: 048
     Dates: end: 20120228
  9. ISOSORBIDE DINITRATE [Concomitant]
     Route: 065
     Dates: start: 20120221, end: 20120221
  10. CEFAZOLIN [Concomitant]
     Indication: INFECTION PROPHYLAXIS
     Route: 065
     Dates: start: 20120220, end: 20120222
  11. LIDOCAINE [Concomitant]
     Indication: EXTRASYSTOLES
     Route: 065
     Dates: start: 20120220, end: 20120220
  12. ISOSORBIDE DINITRATE [Concomitant]
     Route: 065
     Dates: start: 20120221, end: 20120221
  13. ITAVASTATIN [Concomitant]
     Route: 048
     Dates: start: 20120221, end: 20120228
  14. ISOSORBIDE DINITRATE [Concomitant]
     Route: 065
     Dates: start: 20120221, end: 20120221

REACTIONS (1)
  - MYOCARDIAL RUPTURE [None]
